FAERS Safety Report 4877187-X (Version None)
Quarter: 2005Q4

REPORT INFORMATION
  Report Type: 
  Country: None (occurrence: None)
  Receive Date: 20051206
  Receipt Date: 20050929
  Transmission Date: 20060501
  Serious: No
  Sender: FDA-Public Use
  Company Number: USA0509109629

PATIENT
  Sex: Female

DRUGS (3)
  1. CYMBALTA [Suspect]
     Indication: DEPRESSION
     Dosage: 60 MG
     Dates: start: 20040801, end: 20050927
  2. THYROID TAB [Concomitant]
  3. CELEBREX [Concomitant]

REACTIONS (1)
  - EMOTIONAL DISORDER [None]
